FAERS Safety Report 9557301 (Version 1)
Quarter: 2013Q3

REPORT INFORMATION
  Report Type: Spontaneous
  Country: CA (occurrence: CA)
  Receive Date: 20130926
  Receipt Date: 20130926
  Transmission Date: 20140515
  Serious: Yes (Other)
  Sender: FDA-Public Use
  Company Number: PHHY2013CA106142

PATIENT
  Age: 77 Year
  Sex: Female

DRUGS (10)
  1. ZOLEDRONATE [Suspect]
     Dosage: YEARLY
     Route: 042
     Dates: start: 2009
  2. ZOLEDRONATE [Suspect]
     Dosage: YEARLY
     Route: 042
  3. ZOLEDRONATE [Suspect]
     Dosage: YEARLY
     Route: 042
  4. ZOLEDRONATE [Suspect]
     Dosage: YEARLY
     Route: 042
  5. CALCIUM [Concomitant]
     Dosage: 500 MG, BID
  6. VITAMIN D [Concomitant]
     Dosage: 400 U, BID
  7. LYRICA [Concomitant]
     Dosage: 75 MG, BID
  8. NEXIUM//ESOMEPRAZOLE MAGNESIUM [Concomitant]
     Dosage: 40 MG, QD
  9. VENTOLIN                           /00942701/ [Concomitant]
     Dosage: UNK UKN, UNK
  10. FLOVENT [Concomitant]
     Dosage: AS NEEDED

REACTIONS (6)
  - Tibia fracture [Recovering/Resolving]
  - Bone pain [Recovering/Resolving]
  - Oedema peripheral [Recovering/Resolving]
  - Weight bearing difficulty [Recovering/Resolving]
  - Atypical fracture [Recovering/Resolving]
  - Limb injury [Recovering/Resolving]
